FAERS Safety Report 26001883 (Version 1)
Quarter: 2025Q4

REPORT INFORMATION
  Report Type: Spontaneous
  Country: US (occurrence: None)
  Receive Date: 20251105
  Receipt Date: 20251105
  Transmission Date: 20260118
  Serious: No
  Sender: FDA-CTU
  Company Number: None

PATIENT
  Age: 19 Year
  Sex: Female
  Weight: 42.75 kg

DRUGS (1)
  1. DUPIXENT [Suspect]
     Active Substance: DUPILUMAB
     Indication: Dermatitis atopic
     Dosage: 300 MG : EVERY 2 WEEKS SUBCUTANEOUS?
     Route: 058
     Dates: start: 20250828

REACTIONS (2)
  - Erythema dyschromicum perstans [None]
  - Erythema [None]

NARRATIVE: CASE EVENT DATE: 20250915
